FAERS Safety Report 5566865-5 (Version None)
Quarter: 2007Q4

REPORT INFORMATION
  Report Type: 
  Country: None (occurrence: None)
  Receive Date: 20071219
  Receipt Date: 20070118
  Transmission Date: 20080405
  Serious: No
  Sender: FDA-Public Use
  Company Number: US-ABBOTT-07P-163-0356648-00

PATIENT
  Sex: Female
  Weight: 67.646 kg

DRUGS (1)
  1. NIMBEX [Suspect]
     Indication: HEART VALVE REPLACEMENT
     Dosage: 40 MG IN 100 ML NS @ 13 CC/HR; IV-DRIP
     Route: 042
     Dates: start: 20070116

REACTIONS (2)
  - MYDRIASIS [None]
  - PUPIL FIXED [None]
